FAERS Safety Report 9629924 (Version 2)
Quarter: 2013Q4

REPORT INFORMATION
  Report Type: Report from Study
  Country: US (occurrence: US)
  Receive Date: 20131017
  Receipt Date: 20131017
  Transmission Date: 20140711
  Serious: Yes (Death)
  Sender: FDA-Public Use
  Company Number: US-ROCHE-1286866

PATIENT
  Age: 81 Year
  Sex: Male

DRUGS (3)
  1. ALTEPLASE [Suspect]
     Indication: ISCHAEMIC STROKE
     Route: 042
     Dates: start: 20121005
  2. EPTIFIBATIDE [Suspect]
     Indication: ISCHAEMIC STROKE
     Dosage: BOLUS
     Route: 065
     Dates: start: 20121005
  3. EPTIFIBATIDE [Suspect]
     Dosage: A 2-HOUR INFUSION AT 0.75 MCG/KG PER MINUTE
     Route: 065

REACTIONS (2)
  - Haemorrhage intracranial [Fatal]
  - Neurological decompensation [Fatal]
